FAERS Safety Report 8413503-X (Version None)
Quarter: 2012Q2

REPORT INFORMATION
  Report Type: 
  Country: None (occurrence: None)
  Receive Date: 20120605
  Receipt Date: 20120529
  Transmission Date: 20120825
  Serious: Yes (Hospitalization, Other)
  Sender: FDA-Public Use
  Company Number: JP-ROCHE-1023781

PATIENT
  Sex: Female

DRUGS (19)
  1. OMALIZUMAB [Suspect]
     Dates: start: 20110204
  2. THEOPHYLLINE [Concomitant]
  3. SEREVENT [Concomitant]
     Dates: start: 20070723, end: 20110120
  4. URSO 250 [Concomitant]
     Dates: start: 20101119
  5. MONTELUKAST SODIUM [Concomitant]
     Dates: start: 20070723
  6. ALBUTEROL SULFATE [Concomitant]
     Dates: start: 20070723
  7. ITRACONAZOLE [Concomitant]
     Dates: start: 20101119, end: 20101217
  8. CRESTOR [Concomitant]
     Dates: start: 20101019
  9. THEOPHYLLINE [Concomitant]
     Dates: start: 20070723
  10. FAMOTIDINE [Concomitant]
     Dates: start: 20101119
  11. SYMBICORT [Concomitant]
     Dates: start: 20110121
  12. PULMICORT [Concomitant]
     Dates: start: 20070723, end: 20110120
  13. OMALIZUMAB [Suspect]
     Indication: ASTHMA
     Route: 058
     Dates: start: 20101119
  14. ALVESCO [Concomitant]
     Dates: start: 20080711, end: 20110120
  15. AMARYL [Concomitant]
     Dates: start: 20101119
  16. OMALIZUMAB [Suspect]
     Dates: start: 20110114
  17. OMALIZUMAB [Suspect]
     Dates: start: 20110311, end: 20110618
  18. HOKUNALIN [Concomitant]
     Dates: start: 20070723, end: 20110217
  19. NORVASC [Concomitant]
     Dates: start: 20101019

REACTIONS (2)
  - LIVER DISORDER [None]
  - ASTHMA [None]
